FAERS Safety Report 14933692 (Version 5)
Quarter: 2019Q1

REPORT INFORMATION
  Report Type: Report from Study
  Country: CA (occurrence: CA)
  Receive Date: 20180524
  Receipt Date: 20190215
  Transmission Date: 20190417
  Serious: No
  Sender: FDA-Public Use
  Company Number: CA-OTSUKA-2018_013221

PATIENT
  Age: 22 Year
  Sex: Female
  Weight: 60.23 kg

DRUGS (2)
  1. ARIPIPRAZOLE. [Suspect]
     Active Substance: ARIPIPRAZOLE
     Indication: PRODUCT USED FOR UNKNOWN INDICATION
     Dosage: 400 MG, QM
     Route: 030
     Dates: start: 20180323
  2. ARIPIPRAZOLE. [Suspect]
     Active Substance: ARIPIPRAZOLE
     Dosage: 400 MG, QM
     Route: 030
     Dates: start: 20180323

REACTIONS (3)
  - Inappropriate schedule of product administration [Unknown]
  - Refusal of treatment by patient [Unknown]
  - Disease recurrence [Unknown]

NARRATIVE: CASE EVENT DATE: 2018
